FAERS Safety Report 11162599 (Version 1)
Quarter: 2015Q2

REPORT INFORMATION
  Report Type: Spontaneous
  Country: US (occurrence: US)
  Receive Date: 20150604
  Receipt Date: 20150604
  Transmission Date: 20150821
  Serious: No
  Sender: FDA-Public Use
  Company Number: US-SA-2014SA177165

PATIENT
  Age: 62 Year
  Sex: Male

DRUGS (2)
  1. LANTUS SOLOSTAR [Suspect]
     Active Substance: INSULIN GLARGINE
     Indication: TYPE 2 DIABETES MELLITUS
     Dosage: DOSE: 60U AM AND 40U PM
     Route: 065
     Dates: start: 2010
  2. SOLOSTAR [Suspect]
     Active Substance: DEVICE
     Dates: start: 2010

REACTIONS (2)
  - Blood glucose increased [Unknown]
  - Visual impairment [Unknown]
